FAERS Safety Report 7227912-8 (Version None)
Quarter: 2011Q1

REPORT INFORMATION
  Report Type: 
  Country: None (occurrence: None)
  Receive Date: 20110111
  Receipt Date: 20110111
  Transmission Date: 20110831
  Serious: Yes (Life-Threatening, Hospitalization, Other)
  Sender: FDA-Public Use
  Company Number: None

PATIENT
  Sex: Female
  Weight: 91.6266 kg

DRUGS (1)
  1. ADIPEX [Suspect]
     Indication: OBESITY
     Dosage: 37.5 QD PO
     Route: 048
     Dates: start: 20101201, end: 20101224

REACTIONS (5)
  - ANAEMIA [None]
  - ABDOMINAL PAIN [None]
  - WEIGHT DECREASED [None]
  - THROMBOSIS [None]
  - MENORRHAGIA [None]
